FAERS Safety Report 5328179-8 (Version None)
Quarter: 2007Q2

REPORT INFORMATION
  Report Type: 
  Country: None (occurrence: None)
  Receive Date: 20070514
  Receipt Date: 20070509
  Transmission Date: 20071010
  Serious: Yes (Other)
  Sender: FDA-Public Use
  Company Number: 805#1#2007-00049

PATIENT
  Age: 72 Year
  Sex: Male

DRUGS (6)
  1. ALPROSTADIL [Suspect]
     Indication: ARTERIOSCLEROSIS OBLITERANS
     Dosage: 60 MCG (60 MCG 1 IN 1 DAY(S)) INTRAVENOUS DRIP
     Route: 041
     Dates: start: 20070427, end: 20070428
  2. ETIZOLAM (ETIZOLAM) [Concomitant]
  3. ZOLPIDEM TARTRATE [Concomitant]
  4. FUROSEMIDE [Concomitant]
  5. POTASSIUM CANRENOATE (POTASSIUM CANRENOATE) [Concomitant]
  6. OMEPRAZOLE [Concomitant]

REACTIONS (1)
  - HYPOGLYCAEMIA [None]
